FAERS Safety Report 7788711-1 (Version None)
Quarter: 2011Q3

REPORT INFORMATION
  Report Type: 
  Country: None (occurrence: None)
  Receive Date: 20110930
  Receipt Date: 20110923
  Transmission Date: 20111222
  Serious: Yes (Other)
  Sender: FDA-Public Use
  Company Number: US-CEPHALON-2011005086

PATIENT
  Sex: Male

DRUGS (1)
  1. ACTIQ [Suspect]
     Indication: NEOPLASM MALIGNANT
     Route: 002

REACTIONS (2)
  - DENTAL CARIES [None]
  - TESTICULAR OPERATION [None]
